FAERS Safety Report 13371318 (Version 1)
Quarter: 2017Q1

REPORT INFORMATION
  Report Type: Report from Study
  Country: US (occurrence: US)
  Receive Date: 20170324
  Receipt Date: 20170324
  Transmission Date: 20170429
  Serious: Yes (Other)
  Sender: FDA-Public Use
  Company Number: US-GILEAD-2017-0263910

PATIENT
  Age: 44 Year
  Sex: Male

DRUGS (1)
  1. TENOFOVIR DISOPROXIL FUMARATE. [Suspect]
     Active Substance: TENOFOVIR DISOPROXIL FUMARATE
     Indication: LIVER TRANSPLANT
     Dosage: 300 MG, UNK
     Route: 048

REACTIONS (2)
  - Brain neoplasm [Not Recovered/Not Resolved]
  - Off label use [Not Recovered/Not Resolved]
